FAERS Safety Report 5032759-7 (Version None)
Quarter: 2006Q2

REPORT INFORMATION
  Report Type: 
  Country: None (occurrence: None)
  Receive Date: 20060515
  Receipt Date: 20060206
  Transmission Date: 20061013
  Serious: No
  Sender: FDA-Public Use
  Company Number: S06-USA-00453-02

PATIENT
  Age: 89 Year
  Sex: Female

DRUGS (12)
  1. NAMENDA [Suspect]
     Indication: DEMENTIA ALZHEIMER'S TYPE
     Dosage: 10 MG BID PO
     Route: 048
     Dates: start: 20041221, end: 20050503
  2. NAMENDA [Suspect]
     Indication: DEMENTIA ALZHEIMER'S TYPE
     Dosage: 5 MG QD PO
     Route: 048
     Dates: start: 20041130, end: 20041206
  3. NAMENDA [Suspect]
     Indication: DEMENTIA ALZHEIMER'S TYPE
     Dosage: 5 MG BID PO
     Route: 048
     Dates: start: 20041207, end: 20041213
  4. NAMENDA [Suspect]
     Indication: DEMENTIA ALZHEIMER'S TYPE
     Dosage: 15 MG QD PO
     Route: 048
     Dates: start: 20041214, end: 20041220
  5. XANAX [Concomitant]
  6. ZYPREXA [Concomitant]
  7. TRAZODONE HCL [Concomitant]
  8. EFFEXOR [Concomitant]
  9. MIACALCIN [Concomitant]
  10. ARICEPT [Concomitant]
  11. TYLENOL W/ CODEINE NO. 3 [Concomitant]
  12. MOTRIN [Concomitant]

REACTIONS (1)
  - GAIT DISTURBANCE [None]
